FAERS Safety Report 5469683-1 (Version None)
Quarter: 2007Q3

REPORT INFORMATION
  Report Type: 
  Country: None (occurrence: None)
  Receive Date: 20070927
  Receipt Date: 20070920
  Transmission Date: 20080115
  Serious: Yes (Hospitalization)
  Sender: FDA-Public Use
  Company Number: BE-ASTRAZENECA-2007AC01790

PATIENT
  Age: 73 Year
  Sex: Male

DRUGS (3)
  1. SEROQUEL [Suspect]
     Indication: BIPOLAR DISORDER
     Route: 048
  2. VARIOUS ANTIDEPRESSANT [Concomitant]
     Indication: BIPOLAR DISORDER
  3. LI [Concomitant]
     Indication: BIPOLAR DISORDER

REACTIONS (3)
  - ATRIAL FIBRILLATION [None]
  - DEPRESSED LEVEL OF CONSCIOUSNESS [None]
  - HYPOTENSION [None]
